FAERS Safety Report 9276192 (Version 1)
Quarter: 2013Q2

REPORT INFORMATION
  Report Type: Spontaneous
  Country: US (occurrence: None)
  Receive Date: 20130502
  Receipt Date: 20130502
  Transmission Date: 20140414
  Serious: Yes (Hospitalization)
  Sender: FDA-Public Use
  Company Number: None

PATIENT
  Age: 57 Year
  Sex: Female
  Weight: 54.43 kg

DRUGS (5)
  1. MGSO4 2G IN DEXTROSE [Suspect]
     Route: 042
     Dates: start: 20130214, end: 20130221
  2. PREDNISONE [Concomitant]
  3. SYNTHROID [Concomitant]
  4. CELLCEPT [Concomitant]
  5. ATOVAQUONE [Concomitant]

REACTIONS (7)
  - Rash [None]
  - Vomiting [None]
  - Headache [None]
  - Pyrexia [None]
  - Lethargy [None]
  - Dyspnoea [None]
  - Opportunistic infection [None]
